FAERS Safety Report 8880879 (Version 2)
Quarter: 2013Q1

REPORT INFORMATION
  Report Type: Spontaneous
  Country: US (occurrence: US)
  Receive Date: 20121101
  Receipt Date: 20130109
  Transmission Date: 20140127
  Serious: Yes (Death, Hospitalization, Other)
  Sender: FDA-Public Use
  Company Number: US-CELGENEUS-163-21880-12071650

PATIENT
  Age: 69 None
  Sex: Female

DRUGS (3)
  1. REVLIMID [Suspect]
     Indication: PLASMA CELL MYELOMA
     Dosage: 25 MILLIGRAM
     Route: 048
     Dates: start: 20120412
  2. DEXAMETHASONE [Concomitant]
     Indication: PRODUCT USED FOR UNKNOWN INDICATION
     Route: 065
  3. ASPIRIN [Concomitant]
     Indication: PRODUCT USED FOR UNKNOWN INDICATION
     Route: 065

REACTIONS (18)
  - Plasma cell myeloma [Fatal]
  - Sepsis [Fatal]
  - Delirium [Unknown]
  - Pancytopenia [Unknown]
  - Staphylococcal infection [Recovered/Resolved]
  - Transient ischaemic attack [Recovered/Resolved]
  - Pneumonia [Unknown]
  - Dehydration [Not Recovered/Not Resolved]
  - Platelet count decreased [Recovered/Resolved]
  - Weight decreased [Not Recovered/Not Resolved]
  - Fall [Recovering/Resolving]
  - Blood count abnormal [Unknown]
  - Sepsis [Unknown]
  - Asthenia [Unknown]
  - Nausea [Unknown]
  - Gait disturbance [Recovered/Resolved]
  - Ageusia [Recovering/Resolving]
  - Dizziness [Recovered/Resolved]
